FAERS Safety Report 4920750-8 (Version None)
Quarter: 2006Q1

REPORT INFORMATION
  Report Type: 
  Country: None (occurrence: None)
  Receive Date: 20060217
  Receipt Date: 20060204
  Transmission Date: 20060701
  Serious: Yes (Hospitalization)
  Sender: FDA-Public Use
  Company Number: 163-C5013-06020133

PATIENT
  Age: 79 Year
  Sex: Male
  Weight: 79.8 kg

DRUGS (9)
  1. REVLIMID [Suspect]
     Indication: MULTIPLE MYELOMA
     Dosage: 25 MG, QD ON DAYS 1-21, Q28D, ORAL
     Route: 048
     Dates: start: 20060110, end: 20060130
  2. DEXAMETHASONE [Suspect]
     Indication: MULTIPLE MYELOMA
     Dosage: 40 MG, QD ON DAYS 1, 8, 15 AND 22 Q28D, ORAL
     Route: 048
     Dates: start: 20060110, end: 20060130
  3. ASPIRIN/ LOVENOX/WARFARIN [Suspect]
     Indication: THROMBOSIS PROPHYLAXIS
  4. HALDOL [Suspect]
  5. LORTAB [Suspect]
  6. TRAZODONE HCL [Suspect]
  7. HALOPERIDOL [Concomitant]
  8. VICODIN [Concomitant]
  9. TRAZODONE HCL [Concomitant]

REACTIONS (8)
  - AGITATION [None]
  - ASTHENIA [None]
  - CONFUSIONAL STATE [None]
  - FATIGUE [None]
  - GENERAL PHYSICAL HEALTH DETERIORATION [None]
  - LETHARGY [None]
  - MALAISE [None]
  - MOOD ALTERED [None]
